FAERS Safety Report 4650339-X (Version None)
Quarter: 2005Q2

REPORT INFORMATION
  Report Type: 
  Country: None (occurrence: None)
  Receive Date: 20050428
  Receipt Date: 20050415
  Transmission Date: 20051028
  Serious: Yes (Other)
  Sender: FDA-Public Use
  Company Number: 2005060721

PATIENT
  Age: 58 Year
  Sex: Male
  Weight: 90.7194 kg

DRUGS (6)
  1. BEXTRA [Suspect]
     Indication: ARTHRITIS
     Dosage: 20 MG (20 MG, 1 IN 1 D), ORAL
     Route: 048
     Dates: start: 20030101, end: 20041101
  2. LISINOPRIL [Concomitant]
  3. RANITIDINE HYDROCHLORIDE [Concomitant]
  4. GLIPIZIDE [Concomitant]
  5. PIOGLITAZONE HCL [Concomitant]
  6. HYOSCYAMINE SULFATE AND PHENOBARBITAL [Concomitant]

REACTIONS (1)
  - PALPITATIONS [None]
